FAERS Safety Report 15991813 (Version 1)
Quarter: 2019Q1

REPORT INFORMATION
  Report Type: Spontaneous
  Country: GR (occurrence: GR)
  Receive Date: 20190221
  Receipt Date: 20190221
  Transmission Date: 20190418
  Serious: Yes (Hospitalization)
  Sender: FDA-Public Use
  Company Number: GR-MYLANLABS-2019M1015320

PATIENT
  Age: 17 Year

DRUGS (3)
  1. LEVOFLOXACIN. [Suspect]
     Active Substance: LEVOFLOXACIN
     Indication: PNEUMONIA NECROTISING
     Dosage: 500 MILLIGRAM
  2. LINEZOLID. [Suspect]
     Active Substance: LINEZOLID
     Indication: PNEUMONIA NECROTISING
     Dosage: 600 MG EVERY 12 HOURS
  3. MEROPENEM. [Suspect]
     Active Substance: MEROPENEM
     Indication: PNEUMONIA NECROTISING
     Dosage: 2 GRAM, Q8H

REACTIONS (1)
  - Drug ineffective [Recovered/Resolved]
